FAERS Safety Report 4532689-0 (Version None)
Quarter: 2004Q4

REPORT INFORMATION
  Report Type: 
  Country: None (occurrence: None)
  Receive Date: 20041220
  Receipt Date: 20041220
  Transmission Date: 20050328
  Serious: Yes (Other)
  Sender: FDA-Public Use
  Company Number: None

PATIENT
  Sex: Female
  Weight: 68.9467 kg

DRUGS (2)
  1. VANCOMYCIN [Suspect]
     Indication: POSTOPERATIVE INFECTION
     Dosage: 1 GM IV Q 24HR
     Route: 042
     Dates: start: 20041105
  2. VANCOMYCIN [Suspect]
     Indication: POSTOPERATIVE INFECTION
     Dosage: 1 GM IV Q 24HR
     Route: 042
     Dates: start: 20041205

REACTIONS (2)
  - LABORATORY TEST ABNORMAL [None]
  - RENAL IMPAIRMENT [None]
